FAERS Safety Report 9818156 (Version 2)
Quarter: 2014Q1

REPORT INFORMATION
  Report Type: Report from Study
  Country: TH (occurrence: TH)
  Receive Date: 20140115
  Receipt Date: 20140115
  Transmission Date: 20141002
  Serious: Yes (Hospitalization)
  Sender: FDA-Public Use
  Company Number: TH-ROCHE-1257908

PATIENT
  Age: 30 Year
  Sex: Male
  Weight: 78.2 kg

DRUGS (21)
  1. OBINUTUZUMAB [Suspect]
     Indication: DIFFUSE LARGE B-CELL LYMPHOMA
     Dosage: MOST RECENT DOSE RECEIVED ON 02/AUG/2013 AT A VOLUME OF 1000 ML AND DOSE CONCENTRATION OF 250 MG/ML
     Route: 042
     Dates: start: 20130726
  2. CYCLOPHOSPHAMIDE [Suspect]
     Indication: DIFFUSE LARGE B-CELL LYMPHOMA
     Dosage: MOST RECENT DOSE RECEIVED ON 26/JUL/2013 AT A DOSE OF 1500 MG
     Route: 042
     Dates: start: 20130726
  3. DOXORUBICIN [Suspect]
     Indication: DIFFUSE LARGE B-CELL LYMPHOMA
     Dosage: MOST RECENT DOSE RECEIVED ON 26/JUL/2013 AT A DOSE OF 100 MG
     Route: 042
     Dates: start: 20130726
  4. VINCRISTINE [Suspect]
     Indication: DIFFUSE LARGE B-CELL LYMPHOMA
     Dosage: MOST RECENT DOSE RECEIVED ON 26/JUL/2013 AT A DOSE OF 2 MG
     Route: 042
     Dates: start: 20130726
  5. PREDNISONE [Suspect]
     Indication: DIFFUSE LARGE B-CELL LYMPHOMA
     Dosage: MOST RECENT DOSE RECEIVED ON 26/JUL/2013 AT A DOSE OF 100 MG
     Route: 048
     Dates: start: 20130726
  6. ALLOPURINOL [Concomitant]
     Route: 065
     Dates: start: 20130726
  7. ALLOPURINOL [Concomitant]
     Route: 065
     Dates: start: 20130725, end: 20130731
  8. ATIVAN [Concomitant]
     Indication: PROPHYLAXIS
     Route: 065
     Dates: start: 20130726
  9. ATIVAN [Concomitant]
     Route: 065
     Dates: start: 20130725
  10. MOTILIUM (THAILAND) [Concomitant]
     Route: 065
     Dates: start: 20130726
  11. OMEPRAZOLE [Concomitant]
     Indication: PROPHYLAXIS AGAINST GASTROINTESTINAL ULCER
     Route: 065
     Dates: start: 20130726
  12. PARACETAMOL [Concomitant]
     Indication: PREMEDICATION
     Route: 065
     Dates: start: 20130726, end: 20131227
  13. BENADRYL (THAILAND) [Concomitant]
     Indication: PREMEDICATION
     Route: 065
     Dates: start: 20130726, end: 20131227
  14. ONDANSETRON [Concomitant]
     Indication: PREMEDICATION
     Route: 065
     Dates: start: 20130726, end: 20131227
  15. DEXAMETHASONE [Concomitant]
     Indication: CHILLS
     Route: 065
     Dates: start: 20130726, end: 20131227
  16. CHLORPHENIRAMINE [Concomitant]
     Indication: RASH PAPULAR
     Route: 065
     Dates: start: 20130726, end: 20130726
  17. BACLOFEN [Concomitant]
     Indication: HICCUPS
     Route: 065
     Dates: start: 20130727, end: 20130802
  18. BACTRIM [Concomitant]
     Indication: PNEUMONIA
     Route: 065
     Dates: start: 20130923
  19. AUGMENTIN [Concomitant]
     Indication: PNEUMONIA
     Route: 065
     Dates: start: 20130923
  20. LEVOFLOXACIN [Concomitant]
     Indication: PNEUMONIA
     Route: 065
     Dates: start: 20130923
  21. CIPROFLOXACIN [Concomitant]
     Indication: PNEUMONIA
     Route: 065
     Dates: start: 20130923

REACTIONS (1)
  - Febrile neutropenia [Recovered/Resolved]
